FAERS Safety Report 7270252-1 (Version None)
Quarter: 2011Q1

REPORT INFORMATION
  Report Type: 
  Country: None (occurrence: None)
  Receive Date: 20110125
  Receipt Date: 20110125
  Transmission Date: 20110831
  Serious: Yes (Other)
  Sender: FDA-Public Use
  Company Number: None

PATIENT
  Sex: Female
  Weight: 127.0072 kg

DRUGS (1)
  1. AMOXICILLIN [Suspect]
     Indication: PHARYNGITIS
     Dosage: 1 TABLET TWICE DAILY PO
     Route: 048
     Dates: start: 20110119, end: 20110120

REACTIONS (1)
  - HEADACHE [None]
